FAERS Safety Report 17014998 (Version 1)
Quarter: 2019Q4

REPORT INFORMATION
  Report Type: Spontaneous
  Country: US (occurrence: US)
  Receive Date: 20191002
  Receipt Date: 20191002
  Transmission Date: 20200122
  Serious: Yes (Other)
  Sender: FDA-Public Use
  Company Number: None

PATIENT
  Age: 67 Year
  Sex: Female
  Weight: 41.69 kg

DRUGS (8)
  1. LOSARTAN. [Concomitant]
     Active Substance: LOSARTAN
  2. DICLOFENAC [Concomitant]
     Active Substance: DICLOFENAC
  3. 81MG ASPIRIN [Concomitant]
  4. FORTEO [Suspect]
     Active Substance: TERIPARATIDE
     Indication: OSTEOPOROSIS
     Dosage: ?          QUANTITY:1 DF DOSAGE FORM;?
     Dates: start: 20170519, end: 20170519
  5. LIDOCA [Concomitant]
  6. MULTIVITAMIN FOR WOMEN [Concomitant]
     Active Substance: MINERALS\VITAMINS
  7. STOOL SOFTNER [Concomitant]
  8. NORCO [Concomitant]
     Active Substance: ACETAMINOPHEN\HYDROCODONE BITARTRATE

REACTIONS (5)
  - Gingival pain [None]
  - Gingival discolouration [None]
  - Loose tooth [None]
  - Tooth fracture [None]
  - Dental restoration failure [None]

NARRATIVE: CASE EVENT DATE: 20190622
